FAERS Safety Report 22302397 (Version 1)
Quarter: 2023Q2

REPORT INFORMATION
  Report Type: Spontaneous
  Country: US (occurrence: US)
  Receive Date: 20230510
  Receipt Date: 20230510
  Transmission Date: 20230721
  Serious: Yes (Hospitalization, Other)
  Sender: FDA-Public Use
  Company Number: US-ALNYLAM PHARMACEUTICALS, INC.-ALN-2023-002085

PATIENT

DRUGS (2)
  1. GIVLAARI [Suspect]
     Active Substance: GIVOSIRAN SODIUM
     Indication: Product used for unknown indication
     Dosage: UNK
     Route: 065
  2. PANHEMATIN [Concomitant]
     Active Substance: HEMIN
     Indication: Product used for unknown indication
     Dosage: UNK
     Route: 065

REACTIONS (9)
  - Porphyria acute [Unknown]
  - Procedural complication [Unknown]
  - Adrenal insufficiency [Unknown]
  - Drug hypersensitivity [Unknown]
  - Product dose omission issue [Unknown]
  - Incorrect dose administered [Unknown]
  - Malaise [Unknown]
  - Pain [Unknown]
  - Anxiety [Unknown]
